FAERS Safety Report 7690641-0 (Version None)
Quarter: 2011Q3

REPORT INFORMATION
  Report Type: 
  Country: None (occurrence: None)
  Receive Date: 20110812
  Receipt Date: 20110805
  Transmission Date: 20111222
  Serious: Yes (Other)
  Sender: FDA-Public Use
  Company Number: TRP_07881_2011

PATIENT
  Age: 44 Year
  Sex: Male

DRUGS (2)
  1. PEGINTERFERON ALFA-2B [Suspect]
     Indication: HEPATITIS C
     Dosage: UNSPECIFIED WEIGHT-BASED DOSE
  2. RIBAVIRIN [Suspect]
     Indication: HEPATITIS C
     Dosage: UNSPECIFIED WEIGHT-BASED DOSE

REACTIONS (3)
  - HEPATIC FIBROSIS [None]
  - SARCOIDOSIS [None]
  - GRANULOMATOUS LIVER DISEASE [None]
